FAERS Safety Report 6980862-4 (Version None)
Quarter: 2010Q3

REPORT INFORMATION
  Report Type: 
  Country: None (occurrence: None)
  Receive Date: 20100914
  Receipt Date: 20100901
  Transmission Date: 20110219
  Serious: Yes (Hospitalization)
  Sender: FDA-Public Use
  Company Number: A0880408A

PATIENT
  Age: 61 Year
  Sex: Female
  Weight: 60.8 kg

DRUGS (4)
  1. OFATUMUMAB [Suspect]
     Dosage: 1000MG CYCLIC
     Route: 042
     Dates: start: 20100803
  2. PENTOSTATIN [Suspect]
     Dosage: 2MGM2 CYCLIC
     Route: 042
     Dates: start: 20100803
  3. CYCLOPHOSPHAMIDE [Suspect]
     Dosage: 600MGM2 CYCLIC
     Route: 042
     Dates: start: 20100803
  4. PEGFILGRASTIM [Suspect]
     Dosage: 6MG CYCLIC
     Route: 058
     Dates: start: 20100804

REACTIONS (2)
  - ABDOMINAL PAIN [None]
  - HEADACHE [None]
